FAERS Safety Report 4581311-6 (Version None)
Quarter: 2005Q1

REPORT INFORMATION
  Report Type: 
  Country: None (occurrence: None)
  Receive Date: 20050214
  Receipt Date: 20040923
  Transmission Date: 20050727
  Serious: No
  Sender: FDA-Public Use
  Company Number: US-GLAXOSMITHKLINE-A0527130A

PATIENT
  Age: 25 Year
  Sex: Female

DRUGS (3)
  1. LAMICTAL [Suspect]
     Dosage: 100MG PER DAY
     Route: 048
     Dates: start: 20040910, end: 20040918
  2. DEPAKOTE [Suspect]
     Dosage: 250MG PER DAY
     Dates: start: 20040910, end: 20040918
  3. IBUPROFEN [Concomitant]

REACTIONS (3)
  - LYMPHADENOPATHY [None]
  - PYREXIA [None]
  - RASH [None]
